FAERS Safety Report 4909592-7 (Version None)
Quarter: 2006Q1

REPORT INFORMATION
  Report Type: 
  Country: None (occurrence: None)
  Receive Date: 20060213
  Receipt Date: 20051207
  Transmission Date: 20060701
  Serious: Yes (Death, Hospitalization)
  Sender: FDA-Public Use
  Company Number: US-MERCK-0512USA01354

PATIENT
  Age: 69 Year
  Sex: Male

DRUGS (2)
  1. VIOXX [Suspect]
     Indication: OSTEOARTHRITIS
     Route: 048
     Dates: start: 20000801
  2. VIOXX [Suspect]
     Route: 065
     Dates: start: 20040501

REACTIONS (6)
  - DEATH [None]
  - DIABETIC FOOT [None]
  - DIABETIC FOOT INFECTION [None]
  - OESOPHAGEAL SPASM [None]
  - TACHYARRHYTHMIA [None]
  - ULCER [None]
